FAERS Safety Report 4521237-7 (Version None)
Quarter: 2004Q4

REPORT INFORMATION
  Report Type: 
  Country: None (occurrence: None)
  Receive Date: 20041206
  Receipt Date: 20041119
  Transmission Date: 20050328
  Serious: Yes (Death, Life-Threatening)
  Sender: FDA-Public Use
  Company Number: S04-FRA-06713-01

PATIENT
  Age: 71 Year
  Sex: Female
  Weight: 46 kg

DRUGS (10)
  1. CITALOPRAM HYDROBROMIDE [Suspect]
     Indication: PSYCHOTIC DISORDER
     Dosage: 1 TABLET QD PO
     Route: 048
     Dates: end: 20040909
  2. LEPTICUR (TROPATEPINE HYDROCHLORIDE) [Suspect]
     Indication: PSYCHOTIC DISORDER
     Dosage: 10 MG BID PO
     Route: 048
     Dates: end: 20040909
  3. FLEET PHOSPHO-SODA     DEWITT [Suspect]
     Dosage: 1 ONCE PO
     Route: 048
     Dates: start: 20040907, end: 20040908
  4. BISOPROLOL FUMARATE [Suspect]
     Indication: TACHYCARDIA
     Dosage: 1 QD PO
     Route: 048
     Dates: start: 20040814, end: 20040909
  5. XAGRID [Suspect]
     Indication: BLOOD DISORDER
     Dosage: 12 TABLET QD PO
     Route: 048
     Dates: start: 20040803, end: 20040908
  6. XAGRID [Suspect]
     Indication: ESSENTIAL THROMBOCYTHAEMIA
     Dosage: 12 TABLET QD PO
     Route: 048
     Dates: start: 20040803, end: 20040908
  7. XAGRID [Suspect]
     Indication: BLOOD DISORDER
     Dates: start: 20040623, end: 20040802
  8. XAGRID [Suspect]
     Indication: ESSENTIAL THROMBOCYTHAEMIA
     Dates: start: 20040623, end: 20040802
  9. LOXAPINE SUCCINATE [Suspect]
     Indication: PSYCHOTIC DISORDER
     Dosage: 20 MG QD PO
     Route: 048
     Dates: end: 20040909
  10. HYDREA [Suspect]
     Indication: ANAEMIA

REACTIONS (7)
  - ANAEMIA [None]
  - GASTROINTESTINAL HAEMORRHAGE [None]
  - HYPERPHOSPHATAEMIA [None]
  - MYOCARDIAL INFARCTION [None]
  - MYOCARDIAL RUPTURE [None]
  - TACHYCARDIA [None]
  - THROMBOCYTHAEMIA [None]
